FAERS Safety Report 5703238-6 (Version None)
Quarter: 2008Q2

REPORT INFORMATION
  Report Type: 
  Country: None (occurrence: None)
  Receive Date: 20080411
  Receipt Date: 20080204
  Transmission Date: 20081010
  Serious: No
  Sender: FDA-Public Use
  Company Number: US-BAYER-US-2007-043462

PATIENT
  Sex: Female

DRUGS (1)
  1. YAZ [Suspect]
     Route: 048
     Dates: start: 20070801, end: 20071114

REACTIONS (8)
  - ABDOMINAL DISTENSION [None]
  - ACNE [None]
  - DEPRESSION [None]
  - INCREASED APPETITE [None]
  - LIBIDO DECREASED [None]
  - MOOD SWINGS [None]
  - SCAR [None]
  - WEIGHT INCREASED [None]
